FAERS Safety Report 4980357-3 (Version None)
Quarter: 2006Q2

REPORT INFORMATION
  Report Type: 
  Country: None (occurrence: None)
  Receive Date: 20060418
  Receipt Date: 20060410
  Transmission Date: 20061013
  Serious: Yes (Other)
  Sender: FDA-Public Use
  Company Number: 2006049674

PATIENT
  Age: 54 Year
  Sex: Female
  Weight: 104.3273 kg

DRUGS (2)
  1. LIPITOR [Suspect]
     Indication: BLOOD CHOLESTEROL INCREASED
     Dosage: 20 MG (20 MG, 1 IN 1 D), ORAL
     Route: 048
     Dates: start: 20050101, end: 20060301
  2. ASPIRIN [Concomitant]

REACTIONS (6)
  - ARTHRITIS [None]
  - DEAFNESS UNILATERAL [None]
  - EXERCISE TOLERANCE DECREASED [None]
  - HEPATIC ENZYME INCREASED [None]
  - MYALGIA [None]
  - NERVE INJURY [None]
